FAERS Safety Report 4351801-X (Version None)
Quarter: 2004Q2

REPORT INFORMATION
  Report Type: 
  Country: None (occurrence: None)
  Receive Date: 20040429
  Receipt Date: 20040309
  Transmission Date: 20050107
  Serious: No
  Sender: FDA-Public Use
  Company Number: 2004-113770-NL

PATIENT
  Age: 19 Year
  Sex: Female
  Weight: 59.1 kg

DRUGS (1)
  1. NUVARING [Suspect]
     Indication: CONTRACEPTION
     Dates: start: 20040218

REACTIONS (3)
  - MEDICAL DEVICE DISCOMFORT [None]
  - METRORRHAGIA [None]
  - VAGINAL DISCHARGE [None]
